FAERS Safety Report 20994201 (Version 1)
Quarter: 2022Q2

REPORT INFORMATION
  Report Type: Spontaneous
  Country: NL (occurrence: NL)
  Receive Date: 20220622
  Receipt Date: 20220622
  Transmission Date: 20220720
  Serious: Yes (Other)
  Sender: FDA-Public Use
  Company Number: NL-002147023-NVSC2022NL130256

PATIENT
  Sex: Female

DRUGS (5)
  1. IMATINIB [Suspect]
     Active Substance: IMATINIB
     Indication: Chronic myeloid leukaemia
     Dosage: UNK
     Dates: start: 201702
  2. IMATINIB [Suspect]
     Active Substance: IMATINIB
     Dosage: UNK
     Dates: start: 202001
  3. IMATINIB [Suspect]
     Active Substance: IMATINIB
     Dosage: 300 MILLIGRAM, QD
     Dates: start: 201409
  4. IMATINIB [Suspect]
     Active Substance: IMATINIB
     Dosage: UNK
     Dates: start: 201402
  5. IMATINIB [Suspect]
     Active Substance: IMATINIB
     Dosage: 400 MILLIGRAM, QD
     Dates: start: 201505

REACTIONS (4)
  - Chronic myeloid leukaemia recurrent [Unknown]
  - Hyperleukocytosis [Unknown]
  - White blood cell count increased [Unknown]
  - Drug intolerance [Unknown]

NARRATIVE: CASE EVENT DATE: 20191001
